FAERS Safety Report 4916941-2 (Version None)
Quarter: 2006Q1

REPORT INFORMATION
  Report Type: 
  Country: None (occurrence: None)
  Receive Date: 20060214
  Receipt Date: 20060201
  Transmission Date: 20060701
  Serious: No
  Sender: FDA-Public Use
  Company Number: 2006005130

PATIENT
  Age: 77 Year
  Sex: Female
  Weight: 48.5 kg

DRUGS (10)
  1. ZYVOX [Suspect]
     Indication: ILL-DEFINED DISORDER
     Dosage: 1200 MG (600 MG, BID)
     Dates: start: 20050430, end: 20050607
  2. POVIDONE IODINE [Concomitant]
  3. AZACTAM [Concomitant]
  4. DIFLUCAN [Concomitant]
  5. ISOSORBIDE DINITRATE [Concomitant]
  6. SUCROSE (SUCROSE) [Concomitant]
  7. VOLTAREN [Concomitant]
  8. PHENYTOIN [Concomitant]
  9. BIOFERMIN R (STREPTOCOCCUS FAECALS) [Concomitant]
  10. INSULIN [Concomitant]

REACTIONS (2)
  - GAMMA-GLUTAMYLTRANSFERASE INCREASED [None]
  - PANCREATITIS ACUTE [None]
